FAERS Safety Report 9187051 (Version 2)
Quarter: 2013Q3

REPORT INFORMATION
  Report Type: Spontaneous
  Country: FR (occurrence: FR)
  Receive Date: 20130325
  Receipt Date: 20130731
  Transmission Date: 20140515
  Serious: Yes (Life-Threatening)
  Sender: FDA-Public Use
  Company Number: FR-JNJFOC-20130305991

PATIENT
  Age: 50 Year
  Sex: Male

DRUGS (5)
  1. RISPERDAL [Suspect]
     Indication: DEPRESSION
     Route: 048
     Dates: end: 20130121
  2. RISPERDAL [Suspect]
     Indication: DEPRESSION
     Route: 048
     Dates: end: 20130118
  3. TERCIAN [Suspect]
     Indication: DEPRESSION
     Route: 048
     Dates: end: 20130118
  4. IMOVANE [Concomitant]
     Indication: PRODUCT USED FOR UNKNOWN INDICATION
     Route: 048
  5. SERESTA [Concomitant]
     Indication: PRODUCT USED FOR UNKNOWN INDICATION
     Route: 048

REACTIONS (4)
  - Cerebral infarction [Recovered/Resolved]
  - Carotid artery stenosis [Recovering/Resolving]
  - Hemiparesis [Recovering/Resolving]
  - VIIth nerve paralysis [Recovering/Resolving]
